FAERS Safety Report 25417441 (Version 2)
Quarter: 2025Q2

REPORT INFORMATION
  Report Type: Spontaneous
  Country: FR (occurrence: FR)
  Receive Date: 20250610
  Receipt Date: 20250620
  Transmission Date: 20250716
  Serious: Yes (Other)
  Sender: MYLAN
  Company Number: FR-MYLANLABS-2025M1047922

PATIENT
  Age: 77 Year
  Sex: Male

DRUGS (11)
  1. DOCETAXEL [Suspect]
     Active Substance: DOCETAXEL
     Indication: Nasal sinus cancer
  2. CISPLATIN [Suspect]
     Active Substance: CISPLATIN
     Indication: Nasal sinus cancer
  3. CARBOPLATIN [Suspect]
     Active Substance: CARBOPLATIN
     Indication: Nasal sinus cancer
  4. PACLITAXEL [Suspect]
     Active Substance: PACLITAXEL
     Indication: Nasal sinus cancer
  5. GEMCITABINE [Suspect]
     Active Substance: GEMCITABINE
     Indication: Nasal sinus cancer
  6. METHOTREXATE [Suspect]
     Active Substance: METHOTREXATE
     Indication: Nasal sinus cancer
  7. CETUXIMAB [Suspect]
     Active Substance: CETUXIMAB
     Indication: Nasal sinus cancer
  8. NIVOLUMAB [Suspect]
     Active Substance: NIVOLUMAB
     Indication: Nasal sinus cancer
  9. ERDAFITINIB [Suspect]
     Active Substance: ERDAFITINIB
     Indication: Nasal sinus cancer
  10. ERDAFITINIB [Suspect]
     Active Substance: ERDAFITINIB
  11. FLUOROURACIL [Concomitant]
     Active Substance: FLUOROURACIL
     Indication: Nasal sinus cancer

REACTIONS (3)
  - Drug ineffective [Unknown]
  - Disease progression [Unknown]
  - Off label use [Unknown]
